FAERS Safety Report 17527538 (Version 1)
Quarter: 2020Q1

REPORT INFORMATION
  Report Type: Spontaneous
  Country: US (occurrence: US)
  Receive Date: 20200303
  Receipt Date: 20200303
  Transmission Date: 20200409
  Serious: Yes (Other)
  Sender: FDA-Public Use
  Company Number: None

PATIENT
  Sex: Female

DRUGS (2)
  1. ARMODAFINIL. [Concomitant]
     Active Substance: ARMODAFINIL
  2. NUVIGIL [Suspect]
     Active Substance: ARMODAFINIL

REACTIONS (4)
  - Impaired work ability [None]
  - Therapeutic product effect decreased [None]
  - Loss of personal independence in daily activities [None]
  - Product substitution issue [None]
